FAERS Safety Report 20690205 (Version 1)
Quarter: 2022Q2

REPORT INFORMATION
  Report Type: Spontaneous
  Country: US (occurrence: US)
  Receive Date: 20220408
  Receipt Date: 20220408
  Transmission Date: 20220720
  Serious: No
  Sender: FDA-Public Use
  Company Number: US-BIOVITRUM-2022US03598

PATIENT
  Sex: Male
  Weight: 8 kg

DRUGS (2)
  1. SYNAGIS [Suspect]
     Active Substance: PALIVIZUMAB
     Indication: Fallot^s tetralogy
     Route: 030
     Dates: start: 202111
  2. SYNAGIS [Suspect]
     Active Substance: PALIVIZUMAB
     Indication: Premature baby
     Dosage: 100MG GIVEN IN LEFT THIGH AND 20 MG GIVEN IN RIGHT THIGH
     Route: 030
     Dates: start: 20220110, end: 20220110

REACTIONS (1)
  - Illness [Unknown]
